FAERS Safety Report 7595869-6 (Version None)
Quarter: 2011Q3

REPORT INFORMATION
  Report Type: 
  Country: None (occurrence: None)
  Receive Date: 20110707
  Receipt Date: 20110628
  Transmission Date: 20111222
  Serious: Yes (Hospitalization, Other)
  Sender: FDA-Public Use
  Company Number: US-ASTRAZENECA-2011SE15453

PATIENT
  Age: 52 Year
  Sex: Female
  Weight: 77.1 kg

DRUGS (3)
  1. SEROQUEL XR [Suspect]
     Indication: POST-TRAUMATIC STRESS DISORDER
     Route: 048
     Dates: start: 20040101
  2. TYLENOL-500 [Concomitant]
     Indication: MIGRAINE
     Dosage: 3-4 GM A DAY
  3. CRESTOR [Suspect]
     Indication: HYPERCHOLESTEROLAEMIA
     Route: 048
     Dates: start: 20100301

REACTIONS (11)
  - OFF LABEL USE [None]
  - CHOLECYSTITIS CHRONIC [None]
  - INFECTION [None]
  - HYPONATRAEMIA [None]
  - CHOLECYSTECTOMY [None]
  - LACTIC ACIDOSIS [None]
  - HEPATIC ENZYME INCREASED [None]
  - ABDOMINAL PAIN UPPER [None]
  - PYREXIA [None]
  - DIZZINESS [None]
  - DRUG DOSE OMISSION [None]
